FAERS Safety Report 9604830 (Version 1)
Quarter: 2013Q4

REPORT INFORMATION
  Report Type: Spontaneous
  Country: CH (occurrence: CH)
  Receive Date: 20131008
  Receipt Date: 20131008
  Transmission Date: 20140711
  Serious: Yes (Death, Hospitalization)
  Sender: FDA-Public Use
  Company Number: CH-SA-2013SA096554

PATIENT
  Age: 65 Year
  Sex: Female

DRUGS (5)
  1. ARAVA [Suspect]
     Indication: RHEUMATOID ARTHRITIS
     Route: 048
     Dates: start: 20110323
  2. ARAVA [Suspect]
     Indication: RHEUMATOID ARTHRITIS
     Dosage: 3 X 20MG/WEEK
     Route: 048
     Dates: start: 20130104, end: 20130712
  3. ENBREL [Concomitant]
     Dosage: FORM: VIAL
     Route: 058
     Dates: start: 20110323, end: 20130115
  4. ENBREL [Concomitant]
     Route: 058
     Dates: start: 20130116, end: 20130712
  5. SPIRICORT [Concomitant]
     Route: 048
     Dates: start: 20110323, end: 20130811

REACTIONS (4)
  - Renal failure acute [Fatal]
  - Thrombocytopenia [Fatal]
  - Nausea [Fatal]
  - Acute hepatic failure [Fatal]
